FAERS Safety Report 5127938-4 (Version None)
Quarter: 2006Q4

REPORT INFORMATION
  Report Type: 
  Country: None (occurrence: None)
  Receive Date: 20061016
  Receipt Date: 20061005
  Transmission Date: 20070319
  Serious: Yes (Other)
  Sender: FDA-Public Use
  Company Number: GB-BOEHRINGER INGELHEIM PHARMACEUTICALS, INC.-2006-DE-05388GL

PATIENT
  Age: 74 Year
  Sex: Female

DRUGS (8)
  1. TELMISARTAN [Suspect]
     Indication: HYPERTENSION
     Route: 048
     Dates: start: 20051201, end: 20060601
  2. SPIRONOLACTONE [Suspect]
     Indication: RIGHT VENTRICULAR FAILURE
     Route: 048
     Dates: start: 20051201, end: 20060601
  3. ALLOPURINOL [Concomitant]
  4. BISOPROLOL FUMARATE [Concomitant]
  5. ROSIGLITAZONE MALEATE [Concomitant]
  6. SIMVASTATIN [Concomitant]
  7. TOLBUTAMIDE [Concomitant]
  8. WARFARIN SODIUM [Concomitant]

REACTIONS (2)
  - ANAEMIA [None]
  - NEUTROPENIA [None]
